FAERS Safety Report 10367821 (Version 2)
Quarter: 2014Q4

REPORT INFORMATION
  Report Type: Spontaneous
  Country: JP (occurrence: JP)
  Receive Date: 20140807
  Receipt Date: 20141204
  Transmission Date: 20150528
  Serious: Yes (Hospitalization)
  Sender: FDA-Public Use
  Company Number: JP-BRACCO-008281

PATIENT
  Age: 66 Year
  Sex: Female
  Weight: 56 kg

DRUGS (6)
  1. IOPAMIRON [Suspect]
     Active Substance: IOPAMIDOL
     Indication: COMPUTERISED TOMOGRAM
     Dosage: ADMINISTERED AT 1.4 ML/SEC
     Route: 042
     Dates: start: 20140724, end: 20140724
  2. DEPAKENE [Concomitant]
     Active Substance: VALPROIC ACID
     Dates: start: 201011
  3. MEILAX [Concomitant]
     Active Substance: ETHYL LOFLAZEPATE
     Dates: start: 201011
  4. MEILAX [Concomitant]
     Active Substance: ETHYL LOFLAZEPATE
  5. TOFRANIL [Concomitant]
     Active Substance: IMIPRAMINE HYDROCHLORIDE
     Dates: start: 201011
  6. HYDANTOL [Concomitant]
     Active Substance: PHENYTOIN SODIUM
     Dates: start: 201011

REACTIONS (1)
  - Anaphylactic shock [Recovered/Resolved]

NARRATIVE: CASE EVENT DATE: 20140724
